FAERS Safety Report 14448714 (Version 2)
Quarter: 2018Q2

REPORT INFORMATION
  Report Type: Spontaneous
  Country: US (occurrence: US)
  Receive Date: 20180126
  Receipt Date: 20180612
  Transmission Date: 20180711
  Serious: Yes (Hospitalization, Other)
  Sender: FDA-Public Use
  Company Number: US-DSJP-DSU-2017-140976

PATIENT

DRUGS (1)
  1. BENICAR [Suspect]
     Active Substance: OLMESARTAN MEDOXOMIL
     Indication: PRODUCT USED FOR UNKNOWN INDICATION
     Dosage: 20 MG, QD
     Dates: start: 20090320, end: 20140714

REACTIONS (3)
  - Constipation [Not Recovered/Not Resolved]
  - Sprue-like enteropathy [Recovering/Resolving]
  - Diverticulitis [Recovered/Resolved]

NARRATIVE: CASE EVENT DATE: 20090907
